FAERS Safety Report 21742036 (Version 1)
Quarter: 2022Q4

REPORT INFORMATION
  Report Type: Spontaneous
  Country: ES (occurrence: ES)
  Receive Date: 20221216
  Receipt Date: 20221216
  Transmission Date: 20230113
  Serious: Yes (Other)
  Sender: FDA-Public Use
  Company Number: None

PATIENT
  Age: 61 Year
  Sex: Female
  Weight: 63 kg

DRUGS (2)
  1. MESALAMINE [Suspect]
     Active Substance: MESALAMINE
     Indication: Colitis
     Dosage: 1200 MILLIGRAM, Q12H
     Route: 048
     Dates: start: 20221111, end: 20221111
  2. CARVEDILOL KERN PHARMA [Concomitant]
     Indication: Ventricular tachycardia
     Dosage: 6.25 MILLIGRAM, BID
     Dates: start: 20100510

REACTIONS (1)
  - Dizziness [Recovered/Resolved]

NARRATIVE: CASE EVENT DATE: 20221111
